FAERS Safety Report 5333185-3 (Version None)
Quarter: 2007Q2

REPORT INFORMATION
  Report Type: 
  Country: None (occurrence: None)
  Receive Date: 20070524
  Receipt Date: 20070514
  Transmission Date: 20071010
  Serious: Yes (Hospitalization, Disabling)
  Sender: FDA-Public Use
  Company Number: FR-SANOFI-SYNTHELABO-A02200701401

PATIENT
  Age: 49 Year
  Sex: Female
  Weight: 52 kg

DRUGS (4)
  1. VIRAFERONPEG [Suspect]
     Indication: HEPATITIS C
     Route: 058
     Dates: start: 20060623, end: 20061213
  2. REBETOL [Suspect]
     Indication: HEPATITIS C
     Route: 048
     Dates: start: 20060623, end: 20061213
  3. ACETAMINOPHEN AND TRAMADOL HCL [Suspect]
     Indication: DRUG USE FOR UNKNOWN INDICATION
     Route: 048
     Dates: start: 20060713, end: 20061110
  4. STILNOX [Suspect]
     Indication: DRUG USE FOR UNKNOWN INDICATION
     Route: 048
     Dates: start: 20060623, end: 20061213

REACTIONS (2)
  - ARTHRALGIA [None]
  - MYALGIA [None]
